FAERS Safety Report 25253763 (Version 1)
Quarter: 2025Q2

REPORT INFORMATION
  Report Type: Spontaneous
  Country: GR (occurrence: GR)
  Receive Date: 20250430
  Receipt Date: 20250430
  Transmission Date: 20250716
  Serious: Yes (Other)
  Sender: AMGEN
  Company Number: GR-AMGEN-GRCSP2025080446

PATIENT
  Age: 35 Year
  Sex: Female

DRUGS (6)
  1. PROLIA [Suspect]
     Active Substance: DENOSUMAB
     Indication: Juvenile Paget^s disease
     Dosage: 30 MILLIGRAM, Q3MO
     Route: 065
  2. BEVACIZUMAB [Suspect]
     Active Substance: BEVACIZUMAB
     Indication: Macular oedema
     Route: 065
  3. CALCIUM [Concomitant]
     Active Substance: CALCIUM
     Route: 065
  4. VITAMIN D [Concomitant]
     Active Substance: VITAMIN D NOS
     Route: 065
  5. ZOLEDRONIC ACID [Concomitant]
     Active Substance: ZOLEDRONIC ACID
     Route: 065
  6. AFLIBERCEPT [Concomitant]
     Active Substance: AFLIBERCEPT
     Route: 065

REACTIONS (6)
  - Blindness [Unknown]
  - Macular oedema [Unknown]
  - Choroidal neovascularisation [Unknown]
  - Subretinal fluid [Unknown]
  - Drug effective for unapproved indication [Unknown]
  - Off label use [Unknown]
